FAERS Safety Report 7418641-6 (Version None)
Quarter: 2011Q2

REPORT INFORMATION
  Report Type: 
  Country: None (occurrence: None)
  Receive Date: 20110415
  Receipt Date: 20110330
  Transmission Date: 20111010
  Serious: Yes (Hospitalization, Other)
  Sender: FDA-Public Use
  Company Number: BR-BAYER-2011-022527

PATIENT
  Age: 45 Year
  Sex: Female

DRUGS (5)
  1. BETAFERON [Suspect]
     Indication: MULTIPLE SCLEROSIS
     Dosage: 8 MIU, QOD
     Route: 058
     Dates: start: 20100101
  2. DIAZEPAM [Concomitant]
     Indication: SLEEP DISORDER THERAPY
     Dosage: 1 DF, QD
     Route: 048
     Dates: start: 19910101
  3. CARBAMAZEPINE [Concomitant]
     Indication: EUPHORIC MOOD
     Dosage: 2 DF, QD
     Route: 048
     Dates: start: 19910101
  4. CLONAZEPAM [Concomitant]
     Indication: SLEEP DISORDER THERAPY
     Dosage: 1 DF, QD
     Route: 048
     Dates: start: 20030101
  5. LITHIUM CARBONATE [Concomitant]
     Indication: EUPHORIC MOOD
     Dosage: 4 DF, QD
     Route: 048
     Dates: start: 19910101

REACTIONS (8)
  - BLINDNESS [None]
  - INJECTION SITE MASS [None]
  - INJECTION SITE ERYTHEMA [None]
  - INJECTION SITE INFECTION [None]
  - INJECTION SITE PAIN [None]
  - INJECTION SITE ULCER [None]
  - INJECTION SITE NECROSIS [None]
  - FEELING ABNORMAL [None]
